FAERS Safety Report 14573366 (Version 3)
Quarter: 2018Q3

REPORT INFORMATION
  Report Type: Spontaneous
  Country: PL (occurrence: PL)
  Receive Date: 20180226
  Receipt Date: 20180709
  Transmission Date: 20181010
  Serious: Yes (Life-Threatening, Hospitalization, Disabling, Other)
  Sender: FDA-Public Use
  Company Number: PL-SA-2017SA116590

PATIENT
  Age: 62 Year
  Sex: Female
  Weight: 137 kg

DRUGS (10)
  1. MOCLOBEMIDE [Interacting]
     Active Substance: MOCLOBEMIDE
     Indication: DEPRESSION
     Dosage: 150 MG,HS
     Route: 065
  2. SERTRALINE [Interacting]
     Active Substance: SERTRALINE HYDROCHLORIDE
     Indication: DEPRESSION
     Dosage: 50 MG,HS
     Route: 065
  3. VENLAFAXINE HYDROCHLORIDE. [Interacting]
     Active Substance: VENLAFAXINE HYDROCHLORIDE
     Indication: DEPRESSION
     Dosage: 150 MG,QD
     Route: 048
  4. WARFARIN [Concomitant]
     Active Substance: WARFARIN
  5. ZOLPIDEM TARTRATE. [Suspect]
     Active Substance: ZOLPIDEM TARTRATE
     Indication: INSOMNIA
     Dosage: 10 MG,HS
     Route: 048
  6. ESCITALOPRAM [Suspect]
     Active Substance: ESCITALOPRAM OXALATE
  7. GINKGO BILOBA EXTRACT [Concomitant]
     Active Substance: GINKGO
  8. METOPROLOL TARTRATE. [Suspect]
     Active Substance: METOPROLOL TARTRATE
     Indication: ATRIAL TACHYCARDIA
     Dosage: UNK UNK,UNK
     Route: 065
  9. TRAZODONE [Suspect]
     Active Substance: TRAZODONE HYDROCHLORIDE
  10. SOTALOL. [Concomitant]
     Active Substance: SOTALOL

REACTIONS (14)
  - Syncope [Recovered/Resolved]
  - Middle insomnia [Recovered/Resolved]
  - Drug ineffective [Unknown]
  - Fatigue [Recovered/Resolved]
  - Apallic syndrome [Unknown]
  - Atrial tachycardia [Recovered/Resolved]
  - Arrhythmia [Recovering/Resolving]
  - Fatigue [Unknown]
  - Electrocardiogram QT prolonged [Recovered/Resolved]
  - Palpitations [Recovered/Resolved]
  - Drug interaction [Recovered/Resolved]
  - Initial insomnia [Recovering/Resolving]
  - Insomnia [Recovered/Resolved]
  - Ischaemic stroke [Unknown]
